FAERS Safety Report 5364689-5 (Version None)
Quarter: 2007Q2

REPORT INFORMATION
  Report Type: 
  Country: None (occurrence: None)
  Receive Date: 20070621
  Receipt Date: 20070613
  Transmission Date: 20071010
  Serious: Yes (Hospitalization, Other)
  Sender: FDA-Public Use
  Company Number: PHEH2007US06663

PATIENT
  Age: 49 Year
  Sex: Female

DRUGS (12)
  1. ZELNORM [Suspect]
     Indication: IRRITABLE BOWEL SYNDROME
     Dosage: 6MG BID
     Dates: start: 20060313, end: 20060401
  2. ZELNORM [Suspect]
     Dosage: UNK, DAILY
     Dates: start: 20060801, end: 20060801
  3. ATENOLOL [Concomitant]
     Indication: HYPERTENSION
  4. PREVACID [Concomitant]
     Indication: GASTRIC ULCER
  5. MIRALAX [Concomitant]
     Dosage: QD
     Dates: start: 20060313
  6. ZOCOR [Concomitant]
  7. HYDROCHLOROTHIAZIDE [Concomitant]
  8. LEXAPRO [Concomitant]
  9. XANAX [Concomitant]
  10. CLONAZEPAM [Concomitant]
  11. METFORMIN HCL [Concomitant]
  12. ALLEGRA [Concomitant]

REACTIONS (7)
  - ABASIA [None]
  - APHASIA [None]
  - BLOOD PRESSURE INCREASED [None]
  - CHEST PAIN [None]
  - DIZZINESS [None]
  - DYSPNOEA [None]
  - INTRACARDIAC THROMBUS [None]
